FAERS Safety Report 21486336 (Version 1)
Quarter: 2022Q4

REPORT INFORMATION
  Report Type: Report from Study
  Country: US (occurrence: None)
  Receive Date: 20221020
  Receipt Date: 20221020
  Transmission Date: 20230113
  Serious: Yes (Other)
  Sender: FDA-Public Use
  Company Number: 2022A345931

PATIENT
  Age: 69 Year
  Sex: Female
  Weight: 67.1 kg

DRUGS (1)
  1. FARXIGA [Suspect]
     Active Substance: DAPAGLIFLOZIN PROPANEDIOL
     Dosage: DOSE UNKNOWN
     Route: 048

REACTIONS (2)
  - Fungal infection [Unknown]
  - Headache [Unknown]

NARRATIVE: CASE EVENT DATE: 20220810
